FAERS Safety Report 19891495 (Version 1)
Quarter: 2021Q3

REPORT INFORMATION
  Report Type: Report from Study
  Country: AU (occurrence: AU)
  Receive Date: 20210927
  Receipt Date: 20210927
  Transmission Date: 20211014
  Serious: Yes (Other)
  Sender: FDA-Public Use
  Company Number: NVSC2021AU218929

PATIENT
  Sex: Female

DRUGS (2)
  1. IRBESARTAN. [Suspect]
     Active Substance: IRBESARTAN
     Indication: BLOOD CHOLESTEROL DECREASED
     Dosage: 300 MG, QD
     Route: 065
  2. BISOPROLOL [Suspect]
     Active Substance: BISOPROLOL
     Indication: BLOOD CHOLESTEROL DECREASED
     Dosage: 5 MG, QD
     Route: 065

REACTIONS (6)
  - Product use in unapproved indication [Unknown]
  - Angina pectoris [Unknown]
  - Renal disorder [Unknown]
  - Blood cholesterol increased [Unknown]
  - Cardiac disorder [Unknown]
  - Hypertension [Unknown]
